FAERS Safety Report 12891439 (Version 2)
Quarter: 2017Q1

REPORT INFORMATION
  Report Type: Report from Study
  Country: US (occurrence: US)
  Receive Date: 20161028
  Receipt Date: 20170208
  Transmission Date: 20170428
  Serious: No
  Sender: FDA-Public Use
  Company Number: PHEH2016US027848

PATIENT
  Sex: Female

DRUGS (1)
  1. ILARIS [Suspect]
     Active Substance: CANAKINUMAB
     Indication: CRYOPYRIN ASSOCIATED PERIODIC SYNDROME
     Dosage: 600 MG, EVERY 3 WEEKS
     Route: 065

REACTIONS (6)
  - Headache [Unknown]
  - Cough [Unknown]
  - Fatigue [Unknown]
  - Inappropriate schedule of drug administration [Unknown]
  - Muscle spasms [Unknown]
  - Nasopharyngitis [Unknown]
